FAERS Safety Report 8950895 (Version 2)
Quarter: 2012Q4

REPORT INFORMATION
  Report Type: Spontaneous
  Country: US (occurrence: None)
  Receive Date: 20121113
  Receipt Date: 20121127
  Transmission Date: 20130627
  Serious: Yes (Hospitalization)
  Sender: FDA-Public Use
  Company Number: 2012033862

PATIENT
  Age: 58 Year
  Sex: Male
  Weight: 81.65 kg

DRUGS (11)
  1. HIZENTRA [Suspect]
     Indication: IMMUNODEFICIENCY COMMON VARIABLE
     Route: 058
     Dates: start: 20111215
  2. HIZENTRA [Suspect]
     Indication: IMMUNODEFICIENCY COMMON VARIABLE
     Route: 058
     Dates: start: 20121101, end: 20121101
  3. LEVOTHYROXINE (LEVOTHYROXINE) [Concomitant]
  4. CYTOMEL (LIOTHYRONINE SODIUM) [Concomitant]
  5. B 12 (CYANOCIBALAMIN-TANNIN COMPLEX) [Concomitant]
  6. MULTIVITAMIN (DAILY MULTIVITAMIN) [Concomitant]
  7. SALINE NASAL SPRAY (SODIUM CHLORIDE) [Concomitant]
  8. BIAXIN (CLARITHROMYCIN) [Concomitant]
  9. MEDROL DOSE PACK (METHYLPRENDNISOLONE) [Concomitant]
  10. PROBIOTIC (LACTOBACILLUS REUTERI) [Concomitant]
  11. RADIATION THERAPY [Concomitant]

REACTIONS (5)
  - Hyperhidrosis [None]
  - Tremor [None]
  - Abdominal distension [None]
  - Tooth infection [None]
  - Inflammation [None]
